FAERS Safety Report 13330007 (Version 1)
Quarter: 2017Q1

REPORT INFORMATION
  Report Type: Spontaneous
  Country: US (occurrence: US)
  Receive Date: 20170313
  Receipt Date: 20170313
  Transmission Date: 20170428
  Serious: No
  Sender: FDA-Public Use
  Company Number: US-PFIZER INC-2017095289

PATIENT
  Age: 65 Year
  Sex: Male

DRUGS (5)
  1. GABAPENTIN. [Suspect]
     Active Substance: GABAPENTIN
     Dosage: 900 MG, 1X/DAY (A DAY)
  2. GABAPENTIN. [Suspect]
     Active Substance: GABAPENTIN
     Dosage: 100 MG, UNK
  3. GABAPENTIN. [Suspect]
     Active Substance: GABAPENTIN
     Dosage: 800 MG, DAILY (300MG IN THE MORNING, 200MG IN THE AFTERNOON AND 300MG AT BEDTIME)
     Dates: end: 201608
  4. GABAPENTIN. [Suspect]
     Active Substance: GABAPENTIN
     Indication: NEURALGIA
     Dosage: 400 MG, 3X/DAY
     Route: 048
     Dates: start: 2013
  5. GABAPENTIN. [Suspect]
     Active Substance: GABAPENTIN
     Dosage: 300 MG, 3X/DAY

REACTIONS (6)
  - Drug resistance [Unknown]
  - Product use issue [Unknown]
  - Speech sound disorder [Unknown]
  - Pain in extremity [Unknown]
  - Condition aggravated [Unknown]
  - Pain [Unknown]
